FAERS Safety Report 8114023-2 (Version None)
Quarter: 2012Q1

REPORT INFORMATION
  Report Type: 
  Country: None (occurrence: None)
  Receive Date: 20120203
  Receipt Date: 20120202
  Transmission Date: 20120608
  Serious: Yes (Other)
  Sender: FDA-Public Use
  Company Number: US-PFIZER INC-2012029775

PATIENT
  Sex: Female
  Weight: 86.168 kg

DRUGS (26)
  1. AMOXICILLIN [Concomitant]
     Dosage: 500 MG, UNK
  2. CHANTIX [Suspect]
     Indication: SMOKING CESSATION THERAPY
     Dosage: 0.5 MG, 1X/DAY
     Route: 048
     Dates: start: 20090101, end: 20090101
  3. CHANTIX [Suspect]
     Dosage: UNK
     Route: 048
     Dates: start: 20090101, end: 20090101
  4. HYDROCODONE [Concomitant]
     Dosage: 10 MG, UNK
  5. ADVAIR DISKUS 100/50 [Concomitant]
     Dosage: 250/50 MG, UNK
  6. CRESTOR [Concomitant]
     Dosage: 20 MG, UNK
  7. VITAMIN B COMPLEX CAP [Concomitant]
     Route: 060
  8. PRILOSEC [Concomitant]
     Dosage: 40 MG, UNK
  9. HUMALOG [Concomitant]
     Dosage: 100 MG, UNK
  10. CARVEDILOL [Concomitant]
     Dosage: UNK
  11. NITROSTAT [Concomitant]
     Dosage: 0.4 MG, UNK
     Route: 060
  12. VERAMYST [Concomitant]
     Dosage: UNK
     Route: 045
  13. CALCIUM WITH VITAMIN D [Concomitant]
     Dosage: UNK
  14. VITAMIN B COMPLEX CAP [Concomitant]
     Dosage: 1000 MG, UNK
  15. CLONAZEPAM [Concomitant]
     Dosage: 5 MG, UNK
  16. ACETYLSALICYLIC ACID [Concomitant]
     Dosage: 81 MG, UNK
  17. DOXEPIN [Concomitant]
     Dosage: 10 MG, UNK
  18. AMLODIPINE [Concomitant]
     Dosage: 10 MG, UNK
  19. PAROXETINE [Concomitant]
     Dosage: 40 MG, UNK
  20. VITAMIN D [Concomitant]
     Dosage: 1025 MG, UNK
  21. PLAVIX [Concomitant]
     Dosage: UNK
  22. LOVAZA [Concomitant]
     Dosage: 1 G, UNK
  23. LANTUS [Concomitant]
     Dosage: UNK
  24. LOMOTIL [Concomitant]
     Dosage: UNK
  25. PATANOL [Concomitant]
     Dosage: UNK
  26. LOSARTAN [Concomitant]
     Dosage: 50 MG, UNK

REACTIONS (1)
  - AMNESIA [None]
